FAERS Safety Report 14983979 (Version 1)
Quarter: 2018Q2

REPORT INFORMATION
  Report Type: Spontaneous
  Country: ER (occurrence: ER)
  Receive Date: 20180607
  Receipt Date: 20180607
  Transmission Date: 20180711
  Serious: Yes (Disabling, Other)
  Sender: FDA-Public Use
  Company Number: ER-ACCORD-067804

PATIENT
  Age: 50 Year
  Sex: Female
  Weight: 75 kg

DRUGS (2)
  1. ENALAPRIL [Suspect]
     Active Substance: ENALAPRIL
     Indication: HYPERTENSION
     Dosage: TWO TIMES A DAY
  2. HYDROCHLOROTHIAZIDE. [Suspect]
     Active Substance: HYDROCHLOROTHIAZIDE
     Indication: HYPERTENSION
     Dates: start: 20130610

REACTIONS (5)
  - Balance disorder [Not Recovered/Not Resolved]
  - Wrong drug administered [Unknown]
  - Deafness [Not Recovered/Not Resolved]
  - Accidental overdose [Unknown]
  - Dizziness [Not Recovered/Not Resolved]
